FAERS Safety Report 9237031 (Version 1)
Quarter: 2013Q2

REPORT INFORMATION
  Report Type: Spontaneous
  Country: US (occurrence: US)
  Receive Date: 20130417
  Receipt Date: 20130417
  Transmission Date: 20140414
  Serious: Yes (Death)
  Sender: FDA-Public Use
  Company Number: US-ACTELION-A-US2013-81819

PATIENT
  Age: 84 Year
  Sex: Female

DRUGS (5)
  1. TRACLEER [Suspect]
     Indication: PULMONARY ARTERIAL HYPERTENSION
     Dosage: 125 MG, BID
     Route: 048
     Dates: start: 201005, end: 20130315
  2. TRACLEER [Suspect]
     Dosage: 62.5 MG, BID
     Route: 048
     Dates: start: 201004
  3. REVATIO [Concomitant]
  4. ADCIRCA [Concomitant]
     Dosage: UNK, OD
     Dates: start: 201212
  5. ARGININE ASPARTATE [Concomitant]
     Dosage: 5 G, BID

REACTIONS (3)
  - Pulmonary arterial hypertension [Fatal]
  - Respiratory arrest [Fatal]
  - Disease progression [Fatal]
